FAERS Safety Report 9175305 (Version 2)
Quarter: 2013Q2

REPORT INFORMATION
  Report Type: Report from Study
  Country: CL (occurrence: CL)
  Receive Date: 20130320
  Receipt Date: 20130405
  Transmission Date: 20140414
  Serious: Yes (Hospitalization, Other)
  Sender: FDA-Public Use
  Company Number: CL-ROCHE-1173276

PATIENT
  Age: 64 Year
  Sex: Male
  Weight: 110 kg

DRUGS (3)
  1. XELODA [Suspect]
     Indication: COLON CANCER
     Route: 048
     Dates: start: 20121207, end: 20130326
  2. XELODA [Suspect]
     Route: 048
     Dates: start: 20130108
  3. OXALIPLATIN [Suspect]
     Indication: COLON CANCER
     Route: 042
     Dates: start: 20121207, end: 20130119

REACTIONS (9)
  - Diarrhoea [Recovering/Resolving]
  - Vomiting [Recovered/Resolved]
  - Post procedural haemorrhage [Recovered/Resolved]
  - Swelling [Recovering/Resolving]
  - Rash [Recovered/Resolved]
  - Headache [Not Recovered/Not Resolved]
  - Temperature intolerance [Not Recovered/Not Resolved]
  - Sweat discolouration [Not Recovered/Not Resolved]
  - Dysuria [Not Recovered/Not Resolved]
